FAERS Safety Report 6251466-6 (Version None)
Quarter: 2009Q2

REPORT INFORMATION
  Report Type: 
  Country: None (occurrence: None)
  Receive Date: 20090630
  Receipt Date: 20090622
  Transmission Date: 20091009
  Serious: Yes (Other)
  Sender: FDA-Public Use
  Company Number: PHEH2007US11023

PATIENT
  Sex: Male

DRUGS (6)
  1. ZOMETA [Suspect]
     Indication: MULTIPLE MYELOMA
     Dosage: 4MG
     Route: 042
  2. THALIDOMIDE [Concomitant]
  3. CALCIUM WITH VITAMIN D [Concomitant]
  4. STEROIDS NOS [Concomitant]
  5. ARANESP [Concomitant]
  6. DEXAMETHASONE [Concomitant]

REACTIONS (33)
  - ANAEMIA [None]
  - ANXIETY [None]
  - BACK INJURY [None]
  - BONE LESION [None]
  - BUNDLE BRANCH BLOCK RIGHT [None]
  - BURSITIS [None]
  - CANDIDIASIS [None]
  - CATARACT [None]
  - DECREASED INTEREST [None]
  - DEFORMITY [None]
  - DIARRHOEA [None]
  - ELECTROCARDIOGRAM QRS COMPLEX PROLONGED [None]
  - EMOTIONAL DISTRESS [None]
  - HYPOPHAGIA [None]
  - INFECTION [None]
  - LEFT VENTRICULAR HYPERTROPHY [None]
  - LIFE EXPECTANCY SHORTENED [None]
  - MERALGIA PARAESTHETICA [None]
  - MUSCULOSKELETAL DISCOMFORT [None]
  - NEURALGIA [None]
  - ORAL PAIN [None]
  - OSTEOARTHRITIS [None]
  - OSTEONECROSIS [None]
  - OVERDOSE [None]
  - PAIN [None]
  - POLLAKIURIA [None]
  - RESORPTION BONE INCREASED [None]
  - SINUS ARRHYTHMIA [None]
  - SINUS BRADYCARDIA [None]
  - SPINAL FRACTURE [None]
  - STOMATITIS [None]
  - TOOTH EXTRACTION [None]
  - VERTEBROPLASTY [None]
